FAERS Safety Report 10152523 (Version 1)
Quarter: 2014Q2

REPORT INFORMATION
  Report Type: Report from Study
  Country: ES (occurrence: ES)
  Receive Date: 20140505
  Receipt Date: 20140505
  Transmission Date: 20141212
  Serious: Yes (Other)
  Sender: FDA-Public Use
  Company Number: ES-SA-2014SA056277

PATIENT
  Sex: 0

DRUGS (2)
  1. RIFAMPICIN [Suspect]
     Indication: LATENT TUBERCULOSIS
     Route: 065
  2. ISONIAZID [Suspect]
     Indication: LATENT TUBERCULOSIS
     Route: 065

REACTIONS (1)
  - Arthritis bacterial [Unknown]
